FAERS Safety Report 20811038 (Version 1)
Quarter: 2022Q2

REPORT INFORMATION
  Report Type: Spontaneous
  Country: US (occurrence: US)
  Receive Date: 20220510
  Receipt Date: 20220510
  Transmission Date: 20220721
  Serious: No
  Sender: FDA-Public Use
  Company Number: US-GALDERMA-US2021013999

PATIENT

DRUGS (16)
  1. DIFFERIN GEL [Suspect]
     Active Substance: ADAPALENE
     Indication: Acne cystic
     Dosage: 1 DOSAGE FORM, EVERY OTHER NIGHT
     Route: 061
     Dates: start: 2021, end: 2021
  2. DIFFERIN GEL [Suspect]
     Active Substance: ADAPALENE
     Dosage: 1 DOSAGE FORM, EVERY NIGHT
     Route: 061
     Dates: start: 2021
  3. Drunk Elephant Jelly Cleanser [Concomitant]
     Indication: Product used for unknown indication
     Dosage: BID, AM AND PM
     Route: 061
  4. Acwell pH Licorice Toner [Concomitant]
     Indication: Product used for unknown indication
     Dosage: USED IN AM
     Route: 061
  5. The Ordinary^s Hyaluronic Acid [Concomitant]
     Indication: Product used for unknown indication
     Dosage: BID, USED IN AM AND PM
     Route: 061
  6. The Ordinary?s Niacinimide and Zinc [Concomitant]
     Indication: Product used for unknown indication
     Dosage: QD, USED IN AM
     Route: 061
  7. Cerave Daily Moisturizer [Concomitant]
     Indication: Product used for unknown indication
     Dosage: QD, USED IN AM
     Route: 061
  8. Missha Sun Milk [Concomitant]
     Indication: Product used for unknown indication
     Dosage: QD, USED IN AM
     Route: 061
  9. Unspecified Eye Cream [Concomitant]
     Indication: Product used for unknown indication
     Dosage: QD, USED IN AM
     Route: 061
  10. Clean it Zero Balm Cleanser [Concomitant]
     Indication: Product used for unknown indication
     Dosage: QD, USED IN PM
     Route: 061
  11. Cerave Night Time Moisturizer [Concomitant]
     Indication: Product used for unknown indication
     Dosage: QD, USED IN PM
     Route: 061
  12. Glow Recipe Avocado Eye Sleeping Mask [Concomitant]
     Indication: Product used for unknown indication
     Dosage: QD, USED IN PM
     Route: 061
  13. SUNSCREEN [Concomitant]
     Active Substance: HOMOSALATE\OCTINOXATE\OCTISALATE\OXYBENZONE\TITANIUM DIOXIDE
     Indication: Product used for unknown indication
     Dosage: USED EVERYDAY
     Route: 061
  14. Squalane Oil [Concomitant]
     Indication: Product used for unknown indication
     Dosage: QD, USED IN PM
     Route: 061
  15. Marula Oil [Concomitant]
     Indication: Product used for unknown indication
     Dosage: QD, USED IN PM
     Route: 061
  16. Laniege Cica Sleeping Mask [Concomitant]
     Indication: Product used for unknown indication
     Dosage: QD, USED IN PM
     Route: 061

REACTIONS (10)
  - Dry skin [Unknown]
  - Skin irritation [Unknown]
  - Pain of skin [Unknown]
  - Acne cystic [Unknown]
  - Acne [Unknown]
  - Dry eye [Unknown]
  - Intentional product misuse [Recovered/Resolved]
  - Intentional underdose [Recovered/Resolved]
  - Drug effective for unapproved indication [Recovered/Resolved]
  - Therapeutic response unexpected [Recovered/Resolved]

NARRATIVE: CASE EVENT DATE: 20210101
